FAERS Safety Report 15188372 (Version 2)
Quarter: 2019Q1

REPORT INFORMATION
  Report Type: Spontaneous
  Country: NL (occurrence: NL)
  Receive Date: 20180724
  Receipt Date: 20190220
  Transmission Date: 20190417
  Serious: Yes (Hospitalization)
  Sender: FDA-Public Use
  Company Number: NL-ACCORD-069943

PATIENT
  Age: 81 Year
  Sex: Female
  Weight: 60 kg

DRUGS (12)
  1. ZOLPIDEM [Concomitant]
     Active Substance: ZOLPIDEM\ZOLPIDEM TARTRATE
     Dosage: 1 DD 1
  2. COLECALCIFEROL [Concomitant]
     Active Substance: CHOLECALCIFEROL
     Dosage: 1X PER MONTH
  3. METOPROLOL. [Concomitant]
     Active Substance: METOPROLOL
     Dosage: 1DD 100 MG MGA
  4. PANTOPRAZOLE [Concomitant]
     Active Substance: PANTOPRAZOLE
     Dosage: 1DD20 MG
  5. VALSARTAN. [Concomitant]
     Active Substance: VALSARTAN
     Dosage: 1DD 80 MG
  6. SPIRONOLACTONE. [Suspect]
     Active Substance: SPIRONOLACTONE
     Indication: CARDIAC FAILURE
     Dosage: 1X PER DAG 25 MG
     Dates: start: 20171020, end: 20171129
  7. ACENOCOUMAROL [Concomitant]
     Active Substance: ACENOCOUMAROL
  8. PRAVASTATIN. [Concomitant]
     Active Substance: PRAVASTATIN
     Dosage: 1DD10 MG
  9. ISOSORBIDE. [Concomitant]
     Active Substance: ISOSORBIDE
  10. FUROSEMIDE. [Concomitant]
     Active Substance: FUROSEMIDE
     Dosage: 1DD 20 MG
  11. CALCIUM PANTOTHENATE/NICOTINAMIDE/PYRIDOXINE HYDROCHLORIDE/RIBOFLAVIN/THIAMINE HYDROCHLORIDE [Concomitant]
     Dosage: 1DD1
  12. BECLOMETASONE/FORMOTEROL [Concomitant]

REACTIONS (3)
  - Renal impairment [Recovered/Resolved]
  - Diarrhoea [Recovered/Resolved]
  - Dehydration [Recovered/Resolved]

NARRATIVE: CASE EVENT DATE: 20171020
